FAERS Safety Report 8915934 (Version 3)
Quarter: 2013Q1

REPORT INFORMATION
  Report Type: Spontaneous
  Country: US (occurrence: US)
  Receive Date: 20121119
  Receipt Date: 20130212
  Transmission Date: 20140127
  Serious: Yes (Other)
  Sender: FDA-Public Use
  Company Number: US-JNJFOC-20121106263

PATIENT
  Age: 74 None
  Sex: Female
  Weight: 63.05 kg

DRUGS (6)
  1. XARELTO [Suspect]
     Indication: CEREBROVASCULAR ACCIDENT PROPHYLAXIS
     Route: 048
     Dates: start: 20120817, end: 201210
  2. XARELTO [Suspect]
     Indication: ATRIAL FIBRILLATION
     Route: 048
     Dates: start: 20120817, end: 201210
  3. LEVOTHYROXINE [Concomitant]
     Route: 065
  4. AMLODIPINE / BENAZEPRIL [Concomitant]
     Dosage: 5-10 MG
     Route: 065
  5. PRAVASTATIN [Concomitant]
     Route: 065
     Dates: start: 2011, end: 2012
  6. METOPROLOL [Concomitant]
     Route: 065
     Dates: start: 201208

REACTIONS (3)
  - Liver function test abnormal [Recovered/Resolved]
  - Cholelithiasis [Unknown]
  - Fatigue [Recovered/Resolved]
